FAERS Safety Report 10047471 (Version 3)
Quarter: 2014Q2

REPORT INFORMATION
  Report Type: Spontaneous
  Country: JP (occurrence: JP)
  Receive Date: 20140331
  Receipt Date: 20140527
  Transmission Date: 20141212
  Serious: Yes (Death, Hospitalization)
  Sender: FDA-Public Use
  Company Number: JP-JNJFOC-20140314817

PATIENT
  Age: 82 Year
  Sex: Male
  Weight: 65 kg

DRUGS (9)
  1. XARELTO [Suspect]
     Indication: CEREBROVASCULAR ACCIDENT PROPHYLAXIS
     Route: 048
     Dates: start: 20140116, end: 20140310
  2. ALLEGRA [Concomitant]
     Route: 048
  3. ALOSITOL [Concomitant]
     Route: 048
  4. ARTIST [Concomitant]
     Route: 048
  5. GASTER D [Concomitant]
     Route: 048
  6. EVIPROSTAT [Concomitant]
     Route: 048
  7. XYZAL [Concomitant]
     Indication: DRUG ERUPTION
     Route: 065
     Dates: start: 20140114, end: 20140307
  8. ALOSENN [Concomitant]
     Route: 048
  9. MIYA BM [Concomitant]
     Route: 048

REACTIONS (1)
  - Interstitial lung disease [Fatal]
